FAERS Safety Report 4291013-1 (Version None)
Quarter: 2004Q1

REPORT INFORMATION
  Report Type: 
  Country: None (occurrence: None)
  Receive Date: 20040211
  Receipt Date: 20031028
  Transmission Date: 20041129
  Serious: No
  Sender: FDA-Public Use
  Company Number: US-GLAXOSMITHKLINE-A0431913A

PATIENT
  Age: 52 Year
  Sex: Female

DRUGS (5)
  1. PAXIL [Suspect]
     Indication: DEPRESSION
     Dosage: 20MG PER DAY
     Route: 048
     Dates: start: 20030801
  2. PROTONIX [Concomitant]
  3. SPIRONOLACTONE [Concomitant]
  4. TOPROL-XL [Concomitant]
  5. XANAX [Concomitant]

REACTIONS (1)
  - AMNESIA [None]
